FAERS Safety Report 7824786-9 (Version None)
Quarter: 2011Q4

REPORT INFORMATION
  Report Type: 
  Country: None (occurrence: None)
  Receive Date: 20111019
  Receipt Date: 20110412
  Transmission Date: 20120403
  Serious: No
  Sender: FDA-Public Use
  Company Number: US-BRISTOL-MYERS SQUIBB COMPANY-15503469

PATIENT
  Age: 51 Year
  Sex: Female

DRUGS (1)
  1. AVALIDE [Suspect]
     Indication: HYPERTENSION
     Dosage: USING FOR A NUMBER OF YEARS  1 DF:300/12.5 UNIT NOS
     Route: 048
     Dates: start: 20031206

REACTIONS (3)
  - PALPITATIONS [None]
  - INFLUENZA [None]
  - PAIN IN EXTREMITY [None]
